FAERS Safety Report 18214874 (Version 1)
Quarter: 2020Q3

REPORT INFORMATION
  Report Type: Spontaneous
  Country: US (occurrence: US)
  Receive Date: 20200831
  Receipt Date: 20200831
  Transmission Date: 20201103
  Serious: No
  Sender: FDA-Public Use
  Company Number: US-GALDERMA-US2020025734

PATIENT
  Age: 16 Year
  Sex: Female

DRUGS (2)
  1. EPIDUO FORTE [Suspect]
     Active Substance: ADAPALENE\BENZOYL PEROXIDE
     Indication: ACNE
     Dosage: 0.3/2.5%
     Route: 061
     Dates: start: 20200428, end: 20200520
  2. CLINDAMYCIN. [Concomitant]
     Active Substance: CLINDAMYCIN
     Indication: PRODUCT USED FOR UNKNOWN INDICATION
     Route: 065
     Dates: start: 20200104

REACTIONS (1)
  - Skin burning sensation [Recovered/Resolved]

NARRATIVE: CASE EVENT DATE: 202005
